FAERS Safety Report 8345891-7 (Version None)
Quarter: 2012Q2

REPORT INFORMATION
  Report Type: 
  Country: None (occurrence: None)
  Receive Date: 20120509
  Receipt Date: 20120430
  Transmission Date: 20120825
  Serious: Yes (Hospitalization)
  Sender: FDA-Public Use
  Company Number: US-BIOGENIDEC-2012BI015580

PATIENT
  Sex: Female

DRUGS (1)
  1. TYSABRI [Suspect]
     Indication: MULTIPLE SCLEROSIS
     Route: 042
     Dates: start: 20060926

REACTIONS (6)
  - MULTIPLE SCLEROSIS [None]
  - HYPOAESTHESIA [None]
  - INCONTINENCE [None]
  - CONDITION AGGRAVATED [None]
  - MUSCLE SPASMS [None]
  - ASTHENIA [None]
